FAERS Safety Report 5414592-7 (Version None)
Quarter: 2007Q3

REPORT INFORMATION
  Report Type: 
  Country: None (occurrence: None)
  Receive Date: 20070731
  Receipt Date: 20070411
  Transmission Date: 20080115
  Serious: No
  Sender: FDA-Public Use
  Company Number: 2006PV025854

PATIENT
  Age: 60 Year
  Sex: Female
  Weight: 131.1 kg

DRUGS (6)
  1. EXENATIDE (EXENATIDE) PEN,DISPOSABLE [Suspect]
     Indication: TYPE 2 DIABETES MELLITUS
     Dosage: 5 UG, 2/D, SUBCUTANEOUS
     Route: 058
     Dates: start: 20060919
  2. LANTUS [Concomitant]
  3. HUMALOG [Concomitant]
  4. AMARYL [Concomitant]
  5. GLUCOPHAGE [Concomitant]
  6. NOVOLOG [Concomitant]

REACTIONS (5)
  - LIP SWELLING [None]
  - OEDEMA MOUTH [None]
  - PARAESTHESIA [None]
  - SWOLLEN TONGUE [None]
  - URTICARIA [None]
